FAERS Safety Report 8899027 (Version 1)
Quarter: 2012Q4

REPORT INFORMATION
  Report Type: 
  Country: US (occurrence: US)
  Receive Date: 20121108
  Receipt Date: 20121108
  Transmission Date: 20130627
  Serious: No
  Sender: FDA-Public Use
  Company Number: US-AMGEN-USASP2012034697

PATIENT
  Age: 62 Year
  Sex: Female

DRUGS (5)
  1. ENBREL [Suspect]
     Indication: PRODUCT USED FOR UNKNOWN INDICATION
     Dosage: 50 mg, 2 times/wk
     Route: 058
  2. SYNTHROID [Concomitant]
     Dosage: 125 mug, UNK
  3. LOTENSIN                           /00498401/ [Concomitant]
     Dosage: 10 mg, UNK
  4. ZETIA [Concomitant]
     Dosage: 10 mg, UNK
  5. ALEVE [Concomitant]
     Dosage: 220 mg, UNK

REACTIONS (1)
  - Drug ineffective [Unknown]
